FAERS Safety Report 4836701-0 (Version None)
Quarter: 2005Q4

REPORT INFORMATION
  Report Type: 
  Country: None (occurrence: None)
  Receive Date: 20051121
  Receipt Date: 20051111
  Transmission Date: 20060501
  Serious: Yes (Other)
  Sender: FDA-Public Use
  Company Number: 2005-09-0074

PATIENT
  Age: 40 Year
  Sex: Male
  Weight: 61 kg

DRUGS (2)
  1. PEG-INTRON [Suspect]
     Indication: HEPATITIS C
     Dosage: 100-UK MCG*QW SUBCUTANEOUS; SEE IMAGE
     Route: 058
     Dates: start: 20050114
  2. REBETOL [Suspect]
     Indication: HEPATITIS C
     Dosage: 800 MG ORAL
     Route: 048
     Dates: start: 20050114

REACTIONS (6)
  - CONDITION AGGRAVATED [None]
  - HAEMOGLOBIN INCREASED [None]
  - HYPERCOAGULATION [None]
  - VARICOSE VEIN [None]
  - WHITE BLOOD CELL COUNT ABNORMAL [None]
  - WHITE BLOOD CELL COUNT DECREASED [None]
